FAERS Safety Report 5013435-3 (Version None)
Quarter: 2006Q2

REPORT INFORMATION
  Report Type: 
  Country: None (occurrence: None)
  Receive Date: 20060525
  Receipt Date: 20060508
  Transmission Date: 20061013
  Serious: Yes (Other)
  Sender: FDA-Public Use
  Company Number: US200605001079

PATIENT
  Age: 77 Year
  Sex: Female

DRUGS (8)
  1. FORTEO [Suspect]
     Indication: OSTEOPOROSIS
     Dosage: 20 UG, SEE IMAGE
     Dates: start: 20050914
  2. FORTEO [Concomitant]
  3. SYNTHROID (LEVOTHYROXINE SODIUM) (ESOMEPRAZOLE) [Concomitant]
  4. CALCIUM CITRATE [Concomitant]
  5. ASA (ASPIRIN (ACETYLSALICYLIC ACID) [Concomitant]
  6. VITAMINS-MINERALS THERAPEUTIC (VITAMINS-MINERALS THERAPEUTIC UNKNOWN F [Concomitant]
  7. DIOVAN [Concomitant]
  8. XANAX /USA/ (ALPRAZOLAM) [Concomitant]

REACTIONS (5)
  - CARDIAC VALVE DISEASE [None]
  - HEART RATE DECREASED [None]
  - HYPOTENSION [None]
  - PHARMACEUTICAL PRODUCT COMPLAINT [None]
  - TOOTH EXTRACTION [None]
